FAERS Safety Report 18903190 (Version 2)
Quarter: 2021Q3

REPORT INFORMATION
  Report Type: Report from Study
  Country: CA (occurrence: CA)
  Receive Date: 20210216
  Receipt Date: 20210706
  Transmission Date: 20211014
  Serious: Yes (Hospitalization, Other)
  Sender: FDA-Public Use
  Company Number: CA-JNJFOC-20210220370

PATIENT
  Sex: Female
  Weight: 63.56 kg

DRUGS (1)
  1. REMICADE [Suspect]
     Active Substance: INFLIXIMAB
     Indication: ERYTHEMA NODOSUM
     Route: 042
     Dates: start: 20181108

REACTIONS (11)
  - Discomfort [Unknown]
  - Road traffic accident [Unknown]
  - Urinary tract malformation [Unknown]
  - Confusional state [Unknown]
  - Blood potassium decreased [Unknown]
  - Blood glucose increased [Unknown]
  - Basal cell carcinoma [Unknown]
  - Head injury [Unknown]
  - Loss of consciousness [Unknown]
  - Atrial fibrillation [Unknown]
  - Neck pain [Unknown]
